FAERS Safety Report 4380868-8 (Version None)
Quarter: 2004Q2

REPORT INFORMATION
  Report Type: 
  Country: None (occurrence: None)
  Receive Date: 20040616
  Receipt Date: 20040602
  Transmission Date: 20050107
  Serious: Yes (Other)
  Sender: FDA-Public Use
  Company Number: JP_040503127

PATIENT
  Age: 59 Year
  Sex: Male
  Weight: 67 kg

DRUGS (5)
  1. GEMZAR [Suspect]
     Indication: BLADDER CANCER
     Dosage: 1400 MG OTHER
     Route: 050
     Dates: start: 20040318, end: 20040430
  2. GEMZAR [Suspect]
     Indication: METASTASES TO LUNG
     Dosage: 1400 MG OTHER
     Route: 050
     Dates: start: 20040318, end: 20040430
  3. TAXOTERE [Concomitant]
  4. GASMOTIN (MOSAPRIDE CITRATE) [Concomitant]
  5. CHINESE MEDICINE [Concomitant]

REACTIONS (2)
  - INTERSTITIAL LUNG DISEASE [None]
  - PYELONEPHRITIS [None]
